FAERS Safety Report 7019077-2 (Version None)
Quarter: 2010Q3

REPORT INFORMATION
  Report Type: 
  Country: None (occurrence: None)
  Receive Date: 20100928
  Receipt Date: 20100921
  Transmission Date: 20110219
  Serious: Yes (Other)
  Sender: FDA-Public Use
  Company Number: A0883367A

PATIENT
  Age: 39 Year
  Sex: Female

DRUGS (3)
  1. COMBIVIR [Suspect]
     Indication: ANTIVIRAL TREATMENT
     Dosage: 2TAB PER DAY
     Route: 048
     Dates: start: 20100507
  2. VIRACEPT [Suspect]
     Indication: ANTIVIRAL TREATMENT
     Dosage: 2500MG PER DAY
     Route: 048
     Dates: start: 20100507
  3. RETROVIR [Suspect]
     Indication: ANTIVIRAL TREATMENT
     Dosage: 684MG PER DAY
     Route: 042
     Dates: start: 20100825, end: 20100825

REACTIONS (2)
  - DRUG EXPOSURE DURING PREGNANCY [None]
  - PREMATURE LABOUR [None]
